FAERS Safety Report 7641563-2 (Version None)
Quarter: 2011Q3

REPORT INFORMATION
  Report Type: 
  Country: None (occurrence: None)
  Receive Date: 20110728
  Receipt Date: 20110715
  Transmission Date: 20111222
  Serious: Yes (Death)
  Sender: FDA-Public Use
  Company Number: US-ELI_LILLY_AND_COMPANY-US201004007982

PATIENT
  Sex: Female

DRUGS (30)
  1. GABAPENTIN [Concomitant]
     Dosage: 800 MG, 3/D
     Route: 065
  2. FUROSEMIDE [Concomitant]
     Dosage: 40 MG, 2/D
     Route: 065
  3. ZETIA [Concomitant]
     Dosage: 10 MG, DAILY (1/D)
     Route: 065
  4. FLAXSEED OIL [Concomitant]
     Dosage: UNK, DAILY (1/D)
     Route: 065
  5. LEVOTHYROXINE SODIUM [Concomitant]
     Dosage: 25 MG, DAILY (1/D)
     Route: 065
  6. CHOLESTYRAMINE [Concomitant]
     Dosage: 4 G, DAILY (1/D)
     Route: 065
  7. ASPIRIN [Concomitant]
     Dosage: 81 MG, DAILY (1/D)
     Route: 065
  8. ASCORBIC ACID [Concomitant]
     Dosage: 1 D/F, DAILY (1/D)
     Route: 065
  9. HYDROXYCHLOROQUINE SULFATE [Concomitant]
     Dosage: 200 MG, 2/D
     Route: 065
  10. CALCIUM ACETATE [Concomitant]
     Dosage: UNK, DAILY (1/D)
     Route: 065
  11. VITAMIN D [Concomitant]
     Dosage: UNK, DAILY (1/D)
     Route: 065
  12. URECHOLINE [Concomitant]
     Dosage: 25 MG, 4/D
     Route: 065
  13. FEBUXOSTAT [Concomitant]
     Dosage: 40 MG, DAILY (1/D)
     Route: 065
  14. CITALOPRAM HYDROBROMIDE [Concomitant]
     Dosage: 40 MG, DAILY (1/D)
     Route: 065
  15. LANTUS [Concomitant]
     Dosage: 90 U, DAILY (1/D)
     Route: 065
  16. AMLODIPINE BESYLATE [Concomitant]
     Dosage: 5 MG, DAILY (1/D)
     Route: 065
  17. OXYGEN [Concomitant]
     Dosage: 2 LITER, UNKNOWN
     Route: 065
  18. FORTEO [Suspect]
     Indication: OSTEOPOROSIS
     Dosage: 20 UG, DAILY (1/D)
     Route: 065
     Dates: start: 20090807
  19. FORTEO [Suspect]
     Dosage: 20 UG, QD
  20. WELCHOL [Concomitant]
     Dosage: 625 MG, 2/D
     Route: 065
  21. NOVOLOG [Concomitant]
     Dosage: UNK, AS NEEDED
     Route: 065
  22. SPIRIVA [Concomitant]
     Dosage: 18 UG, DAILY (1/D)
     Route: 065
  23. COREG [Concomitant]
     Dosage: 6.25 MG, 2/D
     Route: 065
  24. APRESOLINE [Concomitant]
     Dosage: 40 MG, 3/D
     Route: 065
  25. VITAMIN TAB [Concomitant]
     Dosage: UNK, DAILY (1/D)
     Route: 065
  26. TRAMADOL HYDROCHLORIDE [Concomitant]
     Dosage: 50 MG, AS NEEDED
     Route: 065
  27. FLOVENT [Concomitant]
     Dosage: 2 D/F, DAILY (1/D)
     Route: 065
  28. LOVAZA [Concomitant]
     Dosage: UNK, DAILY (1/D)
     Route: 065
  29. LISINOPRIL [Concomitant]
     Dosage: 5 MG, DAILY (1/D)
     Route: 065
  30. PREDNISONE [Concomitant]
     Dosage: 10 MG, DAILY (1/D)
     Route: 065

REACTIONS (3)
  - DEATH [None]
  - FALL [None]
  - WRIST FRACTURE [None]
